FAERS Safety Report 8732613 (Version 2)
Quarter: 2013Q1

REPORT INFORMATION
  Report Type: Spontaneous
  Country: FI (occurrence: None)
  Receive Date: 20120731
  Receipt Date: 20121105
  Transmission Date: 20140127
  Serious: Yes (Other)
  Sender: FDA-Public Use
  Company Number: 2012MPI00320

PATIENT
  Age: 34 Year
  Sex: Male

DRUGS (3)
  1. BRENTUXIMAB VEDOTIN [Suspect]
     Indication: HODGKIN^S DISEASE REFRACTORY
     Route: 042
     Dates: start: 20120615
  2. KLEXANE (ENOXAPARIN SODIUM) [Concomitant]
  3. COTRIM [Concomitant]

REACTIONS (3)
  - Transaminases increased [None]
  - Abdominal pain upper [None]
  - International normalised ratio decreased [None]
